FAERS Safety Report 19965017 (Version 3)
Quarter: 2021Q4

REPORT INFORMATION
  Report Type: Spontaneous
  Country: JP (occurrence: JP)
  Receive Date: 20211018
  Receipt Date: 20211130
  Transmission Date: 20220303
  Serious: Yes (Life-Threatening, Hospitalization, Other)
  Sender: FDA-Public Use
  Company Number: JP-TAKEDA-2021TJP078521

PATIENT
  Age: 73 Year
  Sex: Female
  Weight: 41.3 kg

DRUGS (1)
  1. ZEJULA [Suspect]
     Active Substance: NIRAPARIB
     Indication: Ovarian cancer stage IV
     Dosage: 200 MILLIGRAM, QD
     Route: 048
     Dates: start: 20210614, end: 20210628

REACTIONS (8)
  - Platelet count decreased [Recovered/Resolved]
  - Neutrophil count decreased [Recovered/Resolved]
  - C-reactive protein increased [Recovered/Resolved]
  - Vomiting [Unknown]
  - White blood cell count decreased [Recovered/Resolved]
  - Pyrexia [Recovering/Resolving]
  - Faeces discoloured [Recovering/Resolving]
  - Insomnia [Unknown]

NARRATIVE: CASE EVENT DATE: 20210705
